FAERS Safety Report 14937176 (Version 2)
Quarter: 2018Q2

REPORT INFORMATION
  Report Type: Spontaneous
  Country: JP (occurrence: JP)
  Receive Date: 20180525
  Receipt Date: 20180621
  Transmission Date: 20180711
  Serious: Yes (Death, Hospitalization, Other)
  Sender: FDA-Public Use
  Company Number: JP-009507513-1711JPN001850J

PATIENT
  Age: 68 Year
  Sex: Male
  Weight: 62 kg

DRUGS (6)
  1. ATORVASTATIN CALCIUM HYDRATE [Concomitant]
     Active Substance: ATORVASTATIN CALCIUM
     Dosage: 5.0 DF, QD
     Route: 048
  2. GASTER [Concomitant]
     Active Substance: FAMOTIDINE
     Indication: GASTROOESOPHAGEAL REFLUX DISEASE
     Dosage: 10 DF, QD
     Route: 048
     Dates: end: 20170626
  3. BAYASPIRIN [Concomitant]
     Active Substance: ASPIRIN
     Indication: CEREBROVASCULAR DISORDER
     Dosage: 100 DF, QD
     Route: 048
     Dates: end: 20171017
  4. KEYTRUDA [Suspect]
     Active Substance: PEMBROLIZUMAB
     Indication: SQUAMOUS CELL CARCINOMA OF LUNG
     Dosage: 200 MG, Q3W
     Route: 041
     Dates: start: 20170425, end: 20170829
  5. KEYTRUDA [Suspect]
     Active Substance: PEMBROLIZUMAB
     Dosage: 200 MG, Q3W
     Route: 041
     Dates: start: 20180327, end: 20180327
  6. AZILVA [Concomitant]
     Active Substance: AZILSARTAN KAMEDOXOMIL
     Dosage: 20 DF, QD
     Route: 048

REACTIONS (5)
  - Hyperthyroidism [Recovered/Resolved]
  - Secondary adrenocortical insufficiency [Not Recovered/Not Resolved]
  - Hypopituitarism [Not Recovered/Not Resolved]
  - Malignant neoplasm progression [Fatal]
  - Primary hypothyroidism [Not Recovered/Not Resolved]

NARRATIVE: CASE EVENT DATE: 20170620
